FAERS Safety Report 6595803-1 (Version None)
Quarter: 2010Q1

REPORT INFORMATION
  Report Type: 
  Country: None (occurrence: None)
  Receive Date: 20100223
  Receipt Date: 20100105
  Transmission Date: 20100710
  Serious: Yes (Death)
  Sender: FDA-Public Use
  Company Number: US-TYCO HEALTHCARE/MALLINCKRODT-T201000521

PATIENT
  Age: 74 Year
  Sex: Male

DRUGS (9)
  1. ACETAMINOPHEN AND HYDROCODONE BITARTRATE [Suspect]
     Dosage: UNK
     Route: 048
  2. BENZODIAZEPINE [Suspect]
     Dosage: UNK
     Route: 048
  3. RANOLAZINE [Suspect]
     Dosage: UNK
     Route: 048
  4. ANGIOTENSIN-CONVERTING ENZYME INHIBITOR [Suspect]
     Dosage: UNK
     Route: 048
  5. NITROGLYCERIN [Suspect]
     Dosage: UNK
     Route: 048
  6. METOPROLOL TARTRATE [Suspect]
     Dosage: UNK
     Route: 048
  7. SERTRALINE HCL [Suspect]
     Dosage: UNK
     Route: 048
  8. HYDRALAZINE [Suspect]
     Dosage: UNK
     Route: 048
  9. CARDIAC GLYCOSIDES [Suspect]
     Dosage: UNK
     Route: 048

REACTIONS (1)
  - COMPLETED SUICIDE [None]
